FAERS Safety Report 25272035 (Version 1)
Quarter: 2025Q2

REPORT INFORMATION
  Report Type: Spontaneous
  Country: US (occurrence: US)
  Receive Date: 20250506
  Receipt Date: 20250506
  Transmission Date: 20250716
  Serious: Yes (Other)
  Sender: AMGEN
  Company Number: US-AMGEN-USASP2025087062

PATIENT

DRUGS (2)
  1. ENBREL [Suspect]
     Active Substance: ETANERCEPT
     Indication: Product used for unknown indication
     Route: 065
  2. HUMIRA [Suspect]
     Active Substance: ADALIMUMAB
     Indication: Product used for unknown indication
     Route: 065

REACTIONS (10)
  - Acute myeloid leukaemia [Unknown]
  - Rheumatoid arthritis [Unknown]
  - Carpal tunnel decompression [Unknown]
  - Tenoplasty [Unknown]
  - Tenolysis [Unknown]
  - Cholecystectomy [Unknown]
  - Spinal operation [Unknown]
  - Lumbar spinal stenosis [Unknown]
  - Rash [Unknown]
  - Post procedural infection [Unknown]
